FAERS Safety Report 5426189-3 (Version None)
Quarter: 2007Q3

REPORT INFORMATION
  Report Type: 
  Country: None (occurrence: None)
  Receive Date: 20070827
  Receipt Date: 20070822
  Transmission Date: 20080115
  Serious: Yes (Other)
  Sender: FDA-Public Use
  Company Number: A0674732A

PATIENT
  Age: 91 Year
  Sex: Female

DRUGS (3)
  1. PAXIL CR [Suspect]
     Indication: MAJOR DEPRESSION
     Dosage: 12.5MG SEE DOSAGE TEXT
     Route: 048
     Dates: start: 20060101
  2. LUMIGAN [Concomitant]
  3. COSOPT [Concomitant]

REACTIONS (5)
  - DIZZINESS [None]
  - FATIGUE [None]
  - LETHARGY [None]
  - SOMNOLENCE [None]
  - SUICIDAL IDEATION [None]
